FAERS Safety Report 22661880 (Version 1)
Quarter: 2023Q2

REPORT INFORMATION
  Report Type: Report from Study
  Country: CO (occurrence: CO)
  Receive Date: 20230630
  Receipt Date: 20230630
  Transmission Date: 20230721
  Serious: Yes (Other)
  Sender: FDA-Public Use
  Company Number: CO-002147023-NVSC2023CO143103

PATIENT

DRUGS (1)
  1. RUXOLITINIB [Suspect]
     Active Substance: RUXOLITINIB
     Indication: Myelofibrosis
     Dosage: UNK UNK, Q12H
     Route: 048

REACTIONS (4)
  - Platelet count decreased [Unknown]
  - Thrombocytosis [Unknown]
  - Neuropathy peripheral [Unknown]
  - Spleen disorder [Unknown]
